FAERS Safety Report 13467588 (Version 2)
Quarter: 2017Q3

REPORT INFORMATION
  Report Type: Report from Study
  Country: US (occurrence: US)
  Receive Date: 20170421
  Receipt Date: 20170717
  Transmission Date: 20171127
  Serious: Yes (Other)
  Sender: FDA-Public Use
  Company Number: US-AMGEN-USASL2017059081

PATIENT
  Age: 73 Year
  Sex: Female

DRUGS (1)
  1. REPATHA [Suspect]
     Active Substance: EVOLOCUMAB
     Indication: LOW DENSITY LIPOPROTEIN INCREASED
     Dosage: 140 MG, Q2WK
     Route: 065

REACTIONS (7)
  - Endarterectomy [Unknown]
  - Blood pressure fluctuation [Unknown]
  - Fatigue [Unknown]
  - Haemorrhage [Unknown]
  - Coronary artery bypass [Unknown]
  - Cholecystectomy [Unknown]
  - Stent placement [Unknown]
